FAERS Safety Report 14144329 (Version 5)
Quarter: 2018Q1

REPORT INFORMATION
  Report Type: Spontaneous
  Country: US (occurrence: US)
  Receive Date: 20171031
  Receipt Date: 20180111
  Transmission Date: 20180508
  Serious: No
  Sender: FDA-Public Use
  Company Number: US-PFIZER INC-2017444158

PATIENT
  Age: 62 Year
  Sex: Female

DRUGS (5)
  1. SUTENT [Suspect]
     Active Substance: SUNITINIB MALATE
     Dosage: 50 MG, 1X/DAY
  2. SUTENT [Suspect]
     Active Substance: SUNITINIB MALATE
     Indication: METASTATIC RENAL CELL CARCINOMA
     Dosage: 25 MG, CYCLIC (2 WEEKS ON/1 WEEK OFF)
  3. SUTENT [Suspect]
     Active Substance: SUNITINIB MALATE
     Dosage: 25 MG, UNK
  4. SUTENT [Suspect]
     Active Substance: SUNITINIB MALATE
     Dosage: 37.5 MG, 1X/DAY
  5. SUTENT [Suspect]
     Active Substance: SUNITINIB MALATE
     Dosage: UNK

REACTIONS (12)
  - Fall [Unknown]
  - Somnolence [Unknown]
  - Fatigue [Unknown]
  - Tongue erythema [Recovered/Resolved]
  - Nausea [Not Recovered/Not Resolved]
  - Neoplasm progression [Unknown]
  - Balance disorder [Unknown]
  - Musculoskeletal pain [Unknown]
  - Swollen tongue [Recovered/Resolved]
  - Change of bowel habit [Unknown]
  - Head injury [Unknown]
  - Glossodynia [Recovered/Resolved]

NARRATIVE: CASE EVENT DATE: 2017
